FAERS Safety Report 8231324-8 (Version None)
Quarter: 2012Q1

REPORT INFORMATION
  Report Type: 
  Country: None (occurrence: None)
  Receive Date: 20120323
  Receipt Date: 20120320
  Transmission Date: 20120608
  Serious: Yes (Death)
  Sender: FDA-Public Use
  Company Number: GB-GENZYME-CLOF-1001821

PATIENT
  Sex: Female
  Weight: 89.7 kg

DRUGS (14)
  1. PIPERACILLIN AND TAZOBACTAM [Concomitant]
     Indication: ANTIBIOTIC PROPHYLAXIS
     Dosage: 4.5 MG, TID
     Route: 042
     Dates: start: 20070611, end: 20070613
  2. LANSOPRAZOLE [Concomitant]
     Indication: ANTACID THERAPY
     Dosage: 30 MG, QD
     Route: 048
     Dates: end: 20070612
  3. FLUCONAZOLE [Concomitant]
     Indication: ANTIFUNGAL PROPHYLAXIS
     Dosage: 50 MG, QD
     Route: 048
     Dates: start: 20070609, end: 20070612
  4. ACYCLOVIR [Concomitant]
     Indication: ANTIVIRAL PROPHYLAXIS
     Dosage: 200 MG, QID
     Route: 048
     Dates: start: 20070609, end: 20070612
  5. METOCLOPRAMIDE [Concomitant]
     Indication: NAUSEA
     Dosage: 10 MG, PRN (EVERY 4 TO 6 HOURS)
     Route: 048
     Dates: start: 20070609, end: 20070611
  6. METOCLOPRAMIDE [Concomitant]
     Dosage: 10 MG, PRN (EVERY 4-6 HOURS)
     Route: 042
     Dates: start: 20070609, end: 20070611
  7. JANOOK [Concomitant]
     Indication: MINERAL SUPPLEMENTATION
     Dosage: 2 TABLETS, TID
     Route: 048
     Dates: start: 20070611, end: 20070612
  8. ONDANSETRON [Concomitant]
     Indication: ANTIEMETIC SUPPORTIVE CARE
     Dosage: 4 MG, PRN (TID)
     Route: 042
     Dates: start: 20070611, end: 20070612
  9. FLUTICASONE PROPIONATE/SALMETEROL [Concomitant]
     Indication: ASTHMA
     Dosage: UNK UNK, BID
     Route: 055
     Dates: end: 20070612
  10. COLISTIN SULFATE [Concomitant]
     Indication: PRODUCT USED FOR UNKNOWN INDICATION
     Dosage: 1.5 MU, TID
     Route: 048
     Dates: start: 20070609, end: 20070612
  11. EVOLTRA [Suspect]
     Indication: ACUTE MYELOID LEUKAEMIA
     Dosage: 38.8 MG, QDX5
     Route: 065
     Dates: start: 20070530
  12. ENOXAPARIN SODIUM [Concomitant]
     Indication: ANTICOAGULANT THERAPY
     Dosage: 40 MG, QD
     Route: 058
     Dates: start: 20070611, end: 20070611
  13. DAUNORUBICIN HCL [Suspect]
     Indication: ACUTE MYELOID LEUKAEMIA
     Dosage: 97 MG, QDX5
     Route: 065
     Dates: start: 20070530
  14. ALBUTEROL [Concomitant]
     Indication: ASTHMA
     Dosage: 2.5 MG, PRN
     Route: 055
     Dates: start: 20070607, end: 20070612

REACTIONS (1)
  - LUNG INFECTION [None]
